FAERS Safety Report 23933313 (Version 2)
Quarter: 2024Q3

REPORT INFORMATION
  Report Type: Spontaneous
  Country: BE (occurrence: BE)
  Receive Date: 20240603
  Receipt Date: 20240909
  Transmission Date: 20241017
  Serious: Yes (Hospitalization, Disabling, Other)
  Sender: SANOFI AVENTIS
  Company Number: BE-SA-SAC20240530000050

PATIENT
  Age: 72 Year
  Sex: Male

DRUGS (1)
  1. TOUJEO [Suspect]
     Active Substance: INSULIN GLARGINE
     Indication: Type 2 diabetes mellitus
     Dosage: UNK
     Route: 065
     Dates: start: 20220921

REACTIONS (4)
  - Optic ischaemic neuropathy [Unknown]
  - Visual impairment [Unknown]
  - Papilloedema [Unknown]
  - Loss of personal independence in daily activities [Unknown]

NARRATIVE: CASE EVENT DATE: 20220923
